FAERS Safety Report 20826071 (Version 1)
Quarter: 2022Q2

REPORT INFORMATION
  Report Type: Spontaneous
  Country: CN (occurrence: CN)
  Receive Date: 20220513
  Receipt Date: 20220513
  Transmission Date: 20220720
  Serious: Yes (Other)
  Sender: FDA-Public Use
  Company Number: CN-GLAXOSMITHKLINE-CNCH2022APC016419

PATIENT

DRUGS (7)
  1. VOLTAREN [Suspect]
     Active Substance: DICLOFENAC SODIUM
     Indication: Inflammation
     Dosage: 75 MG, QD
     Route: 048
     Dates: start: 20220320, end: 20220324
  2. VOLTAREN [Suspect]
     Active Substance: DICLOFENAC SODIUM
     Indication: Analgesic therapy
  3. VOLTAREN [Suspect]
     Active Substance: DICLOFENAC SODIUM
     Indication: Arthralgia
  4. BENZBROMARONE TABLETS [Concomitant]
     Indication: Gout
     Dosage: 25 MG, QD
     Route: 048
     Dates: start: 20220320
  5. SODIUM BICARBONATE [Concomitant]
     Active Substance: SODIUM BICARBONATE
     Indication: Gout
     Dosage: 1 G, BID
     Route: 048
     Dates: start: 20220320
  6. COLCHICINE [Concomitant]
     Active Substance: COLCHICINE
     Indication: Gout
     Dosage: 0.5 MG, QD
     Route: 048
     Dates: start: 20220320, end: 20220321
  7. XUEZHIKANG CAPSULE [Concomitant]
     Indication: Gout
     Dosage: 0.6 G, BID
     Route: 048
     Dates: start: 20220320, end: 20220429

REACTIONS (2)
  - Rash [Recovered/Resolved]
  - Pruritus [Recovered/Resolved]

NARRATIVE: CASE EVENT DATE: 20220324
